FAERS Safety Report 13245677 (Version 1)
Quarter: 2017Q1

REPORT INFORMATION
  Report Type: Spontaneous
  Country: CA (occurrence: CA)
  Receive Date: 20170217
  Receipt Date: 20170217
  Transmission Date: 20170428
  Serious: Yes (Other)
  Sender: FDA-Public Use
  Company Number: CA-TEVA-739240ACC

PATIENT
  Sex: Female
  Weight: 50 kg

DRUGS (1)
  1. OLANZAPINE. [Suspect]
     Active Substance: OLANZAPINE
     Indication: SCHIZOPHRENIA
     Dosage: 360 MILLIGRAM DAILY;
     Route: 065

REACTIONS (1)
  - Cheyne-Stokes respiration [Recovered/Resolved]
